FAERS Safety Report 9161885 (Version 2)
Quarter: 2013Q1

REPORT INFORMATION
  Report Type: Spontaneous
  Country: FR (occurrence: None)
  Receive Date: 20130221
  Receipt Date: 20130222
  Transmission Date: 20140127
  Serious: Yes (Hospitalization)
  Sender: FDA-Public Use
  Company Number: 1599880

PATIENT
  Age: 47 Year
  Sex: Male

DRUGS (5)
  1. IRINOTECAN HYDROCHLORIDE [Suspect]
     Indication: ADENOCARCINOMA PANCREAS
  2. OXALIPLATIN [Suspect]
     Indication: ADENOCARCINOMA PANCREAS
  3. FLUOROURACIL [Suspect]
     Indication: ADENOCARCINOMA PANCREAS
  4. CORTICOSTEROIDS [Suspect]
     Indication: INTESTINAL OBSTRUCTION
  5. GRANULOCYTE COLONY STIMULATING FACTOR [Concomitant]

REACTIONS (3)
  - Bronchopulmonary aspergillosis [None]
  - Pneumocystis jirovecii pneumonia [None]
  - Febrile neutropenia [None]
